FAERS Safety Report 6291465-1 (Version None)
Quarter: 2009Q3

REPORT INFORMATION
  Report Type: 
  Country: None (occurrence: None)
  Receive Date: 20090730
  Receipt Date: 20090720
  Transmission Date: 20100115
  Serious: Yes (Death, Hospitalization)
  Sender: FDA-Public Use
  Company Number: US-BRISTOL-MYERS SQUIBB COMPANY-14673198

PATIENT
  Age: 83 Year
  Sex: Male

DRUGS (16)
  1. APIXABAN [Suspect]
     Indication: THROMBOSIS PROPHYLAXIS
     Route: 048
     Dates: start: 20090305
  2. WARFARIN SODIUM [Suspect]
     Indication: THROMBOSIS PROPHYLAXIS
     Route: 048
     Dates: start: 20090305
  3. PLACEBO [Suspect]
     Indication: THROMBOSIS PROPHYLAXIS
     Route: 048
     Dates: start: 20090305
  4. CLOPIDOGREL BISULFATE [Concomitant]
     Dates: start: 20090217
  5. ATENOLOL [Concomitant]
  6. AMLODIPINE [Concomitant]
  7. RABEPRAZOLE SODIUM [Concomitant]
  8. FOSINOPRIL SODIUM [Concomitant]
  9. PREGABALIN [Concomitant]
  10. METFORMIN [Concomitant]
  11. GABAPENTIN [Concomitant]
  12. MELOXICAM [Concomitant]
  13. ATORVASTATIN [Concomitant]
  14. VALSARTAN [Concomitant]
  15. FISH OIL [Concomitant]
  16. CALCIUM [Concomitant]

REACTIONS (2)
  - GASTROINTESTINAL HAEMORRHAGE [None]
  - HYPOVOLAEMIA [None]
